FAERS Safety Report 5318618-0 (Version None)
Quarter: 2007Q1

REPORT INFORMATION
  Report Type: 
  Country: None (occurrence: None)
  Receive Date: 20070130
  Receipt Date: 20061026
  Transmission Date: 20070707
  Serious: No
  Sender: FDA-Public Use
  Company Number: 200618911US

PATIENT
  Age: 51 Year
  Sex: Female

DRUGS (2)
  1. KETEK [Suspect]
     Indication: ACUTE SINUSITIS
     Dosage: 800 MG QD PO
     Route: 048
     Dates: start: 20061023, end: 20061027
  2. GALENIC / AMOXICILLIN / CLAVULANIC ACID [Concomitant]

REACTIONS (1)
  - SPUTUM DISCOLOURED [None]
